FAERS Safety Report 7334873-X (Version None)
Quarter: 2011Q1

REPORT INFORMATION
  Report Type: 
  Country: None (occurrence: None)
  Receive Date: 20110302
  Receipt Date: 20110302
  Transmission Date: 20110831
  Serious: Yes (Hospitalization)
  Sender: FDA-Public Use
  Company Number: None

PATIENT
  Sex: Female
  Weight: 70.3075 kg

DRUGS (2)
  1. ERIBULIN 1 MG EISAI [Suspect]
     Indication: BREAST CANCER
     Dosage: 1.8 MG WK 1 + 2, OFF WK 3 IV
     Route: 042
     Dates: start: 20110131, end: 20110131
  2. ERIBULIN 1 MG EISAI [Suspect]
     Indication: BREAST CANCER
     Dosage: 1.25 MG WK 1 + 2, OFF WK 3 IV
     Route: 042
     Dates: start: 20110110, end: 20110110

REACTIONS (6)
  - INCOHERENT [None]
  - AGITATION [None]
  - DISORIENTATION [None]
  - METABOLIC ENCEPHALOPATHY [None]
  - ASTHENIA [None]
  - FATIGUE [None]
